FAERS Safety Report 9753403 (Version 2)
Quarter: 2013Q4

REPORT INFORMATION
  Report Type: Spontaneous
  Country: US (occurrence: US)
  Receive Date: 20131213
  Receipt Date: 20131216
  Transmission Date: 20140711
  Serious: Yes (Other)
  Sender: FDA-Public Use
  Company Number: US-TEVA-406467USA

PATIENT
  Age: 28 Year
  Sex: Male
  Weight: 124.85 kg

DRUGS (5)
  1. PARAGARD 380A [Suspect]
     Indication: CONTRACEPTION
     Route: 015
     Dates: start: 20120912, end: 20130516
  2. PARAGARD 380A [Suspect]
     Route: 015
     Dates: start: 20130516
  3. IRON [Concomitant]
     Indication: MINERAL SUPPLEMENTATION
  4. TAMOXIFEN [Concomitant]
     Indication: BREAST CANCER
  5. LORATADINE [Concomitant]
     Indication: HYPERSENSITIVITY

REACTIONS (2)
  - Device dislocation [Recovered/Resolved]
  - Abdominal pain [Unknown]
